FAERS Safety Report 18385749 (Version 1)
Quarter: 2020Q4

REPORT INFORMATION
  Report Type: Spontaneous
  Country: CN (occurrence: CN)
  Receive Date: 20201015
  Receipt Date: 20201015
  Transmission Date: 20210114
  Serious: Yes (Death, Other)
  Sender: FDA-Public Use
  Company Number: CN-LUPIN PHARMACEUTICALS INC.-2020-07302

PATIENT
  Age: 25 Year
  Sex: Female
  Weight: 41 kg

DRUGS (16)
  1. VANCOMYCIN [Suspect]
     Active Substance: VANCOMYCIN
     Indication: ANTIBIOTIC THERAPY
     Dosage: 1 GRAM, BID (Q12H) (STOPPED)
     Route: 065
     Dates: start: 2019
  2. POLYMYXIN B. [Concomitant]
     Active Substance: POLYMYXIN B
     Indication: KLEBSIELLA BACTERAEMIA
     Dosage: 0.5 MEGA-INTERNATIONAL UNIT, BID (Q12H)
     Route: 065
     Dates: start: 2019
  3. FOSFOMYCIN SODIUM [Concomitant]
     Active Substance: FOSFOMYCIN SODIUM
     Indication: PATHOGEN RESISTANCE
  4. TIGECYCLINE. [Concomitant]
     Active Substance: TIGECYCLINE
     Indication: KLEBSIELLA BACTERAEMIA
     Dosage: 100 MILLIGRAM, BID (Q12H)
     Route: 065
     Dates: start: 2019
  5. POSACONAZOLE [Concomitant]
     Active Substance: POSACONAZOLE
     Indication: ANTIFUNGAL PROPHYLAXIS
     Dosage: UNK
     Route: 065
     Dates: start: 2019
  6. POLYMYXIN B. [Concomitant]
     Active Substance: POLYMYXIN B
     Indication: PATHOGEN RESISTANCE
  7. TIGECYCLINE. [Concomitant]
     Active Substance: TIGECYCLINE
     Indication: PATHOGEN RESISTANCE
  8. POLYMYXIN B. [Concomitant]
     Active Substance: POLYMYXIN B
     Indication: KLEBSIELLA INFECTION
  9. TIGECYCLINE. [Concomitant]
     Active Substance: TIGECYCLINE
     Indication: KLEBSIELLA INFECTION
  10. INDOMETACIN [Concomitant]
     Active Substance: INDOMETHACIN
     Indication: PRODUCT USED FOR UNKNOWN INDICATION
     Dosage: UNK
     Route: 065
  11. TIENAM [Suspect]
     Active Substance: CILASTATIN SODIUM\IMIPENEM
     Indication: ANTIBIOTIC THERAPY
     Dosage: 1 GRAM, QID (Q6H)
     Route: 065
     Dates: start: 2019
  12. LEVOFLOXACIN. [Suspect]
     Active Substance: LEVOFLOXACIN
     Indication: ANTIBIOTIC THERAPY
     Dosage: 0.5 GRAM, QD (SWITCHED TO TIENAM AND VANCOMYCIN)
     Route: 065
  13. SULPERAZONE [Suspect]
     Active Substance: CEFOPERAZONE SODIUM\SULBACTAM SODIUM
     Indication: ANTIBIOTIC THERAPY
     Dosage: 3 GRAM, BID (Q12H) (SWITCHED TO TIENAM AND VANCOMYCIN)
     Route: 065
     Dates: start: 2019
  14. TIENAM [Suspect]
     Active Substance: CILASTATIN SODIUM\IMIPENEM
     Dosage: 2 GRAM, QID (Q6H) (DOSE INCREASED)
     Route: 065
     Dates: start: 2019
  15. FOSFOMYCIN SODIUM [Concomitant]
     Active Substance: FOSFOMYCIN SODIUM
     Indication: KLEBSIELLA BACTERAEMIA
     Dosage: 6 GRAM, BID (Q12H)
     Route: 065
     Dates: start: 2019
  16. FOSFOMYCIN SODIUM [Concomitant]
     Active Substance: FOSFOMYCIN SODIUM
     Indication: KLEBSIELLA INFECTION

REACTIONS (6)
  - Gastrointestinal infection [Not Recovered/Not Resolved]
  - Klebsiella infection [Fatal]
  - Urinary tract infection enterococcal [Not Recovered/Not Resolved]
  - Klebsiella bacteraemia [Fatal]
  - Pathogen resistance [Fatal]
  - Pneumonia klebsiella [Not Recovered/Not Resolved]

NARRATIVE: CASE EVENT DATE: 2019
